FAERS Safety Report 9415490 (Version 2)
Quarter: 2013Q3

REPORT INFORMATION
  Report Type: Spontaneous
  Country: JP (occurrence: JP)
  Receive Date: 20130723
  Receipt Date: 20130731
  Transmission Date: 20140515
  Serious: Yes (Other)
  Sender: FDA-Public Use
  Company Number: JP-PFIZER INC-2013213465

PATIENT
  Age: 64 Year
  Sex: Male

DRUGS (2)
  1. HALCION [Suspect]
     Indication: INSOMNIA
     Dosage: 0.5 MG, DAILY
     Route: 048
  2. DEPAS [Concomitant]
     Route: 048

REACTIONS (1)
  - Glaucoma [Not Recovered/Not Resolved]
